FAERS Safety Report 20339079 (Version 1)
Quarter: 2022Q1

REPORT INFORMATION
  Report Type: Spontaneous
  Country: US (occurrence: US)
  Receive Date: 20220117
  Receipt Date: 20220117
  Transmission Date: 20220423
  Serious: Yes (Hospitalization, Other)
  Sender: FDA-Public Use
  Company Number: US-ABBVIE-22K-163-4226686-00

PATIENT
  Age: 73 Year
  Sex: Female

DRUGS (9)
  1. HUMIRA [Suspect]
     Active Substance: ADALIMUMAB
     Indication: Product used for unknown indication
     Route: 058
     Dates: start: 2021, end: 2021
  2. HUMIRA [Suspect]
     Active Substance: ADALIMUMAB
     Route: 058
     Dates: start: 2021, end: 20210801
  3. LISINOPRIL [Concomitant]
     Active Substance: LISINOPRIL
     Indication: Hypertension
  4. LISINOPRIL [Concomitant]
     Active Substance: LISINOPRIL
  5. METOPROLOL [Concomitant]
     Active Substance: METOPROLOL
     Indication: Hypertension
  6. METOPROLOL [Concomitant]
     Active Substance: METOPROLOL
  7. MODERNA COVID-19 VACCINE [Concomitant]
     Active Substance: ELASOMERAN
     Indication: COVID-19 immunisation
     Dosage: 1ST DOSE MODERNA
     Route: 030
     Dates: start: 20210120, end: 20210120
  8. MODERNA COVID-19 VACCINE [Concomitant]
     Active Substance: ELASOMERAN
     Dosage: 2ND DOSE MODERNA
     Route: 030
     Dates: start: 20210223, end: 20210223
  9. MODERNA COVID-19 VACCINE [Concomitant]
     Active Substance: ELASOMERAN
     Dosage: 3RD DOSE
     Route: 030
     Dates: start: 20211118, end: 20211118

REACTIONS (13)
  - Surgery [Unknown]
  - Abdominal wall abscess [Recovered/Resolved]
  - Hypertension [Recovered/Resolved]
  - Blood pressure decreased [Recovered/Resolved]
  - Fall [Recovered/Resolved]
  - Syncope [Recovered/Resolved]
  - Asthenia [Recovered/Resolved]
  - SARS-CoV-2 test positive [Recovered/Resolved]
  - Immune system disorder [Unknown]
  - Nasopharyngitis [Recovered/Resolved]
  - Pain [Not Recovered/Not Resolved]
  - Wound [Recovered/Resolved]
  - Immunodeficiency [Recovering/Resolving]

NARRATIVE: CASE EVENT DATE: 20210801
